FAERS Safety Report 6131114-6 (Version None)
Quarter: 2009Q1

REPORT INFORMATION
  Report Type: 
  Country: None (occurrence: None)
  Receive Date: 20090325
  Receipt Date: 20090317
  Transmission Date: 20090719
  Serious: Yes (Other)
  Sender: FDA-Public Use
  Company Number: PHHY2009JP03651

PATIENT
  Sex: Female
  Weight: 52 kg

DRUGS (5)
  1. ZOMETA [Suspect]
     Indication: METASTASES TO BONE
     Dosage: 4 MG
     Route: 042
     Dates: start: 20070119, end: 20081024
  2. FEMARA [Concomitant]
     Indication: BREAST CANCER
     Dosage: 2.5 MG
     Route: 048
     Dates: start: 20070518
  3. UFT [Concomitant]
     Indication: BREAST CANCER
     Dosage: 3 DF
     Route: 048
     Dates: start: 20060324, end: 20070907
  4. AROMASIN [Concomitant]
     Indication: BREAST CANCER
     Dosage: 25 MG
     Route: 048
     Dates: start: 20060407, end: 20070517
  5. XELODA [Concomitant]
     Indication: BREAST CANCER
     Dosage: 1200 MG
     Route: 048
     Dates: start: 20070907, end: 20080201

REACTIONS (14)
  - ABSCESS ORAL [None]
  - ANGIOPATHY [None]
  - BONE DISORDER [None]
  - DYSPHAGIA [None]
  - ERYTHEMA [None]
  - GINGIVAL ABSCESS [None]
  - GINGIVAL SWELLING [None]
  - INFECTION [None]
  - ORAL DISORDER [None]
  - ORAL TORUS [None]
  - OSTEONECROSIS [None]
  - PURULENT DISCHARGE [None]
  - STOMATITIS [None]
  - TOOTHACHE [None]
